FAERS Safety Report 5201542-1 (Version None)
Quarter: 2007Q1

REPORT INFORMATION
  Report Type: 
  Country: None (occurrence: None)
  Receive Date: 20070108
  Receipt Date: 20061227
  Transmission Date: 20070707
  Serious: Yes (Hospitalization)
  Sender: FDA-Public Use
  Company Number: DE-PFIZER INC-2007000334

PATIENT
  Sex: Male
  Weight: 95 kg

DRUGS (3)
  1. ZELDOX (CAPSULES) [Suspect]
     Indication: DEPRESSIVE SYMPTOM
     Dosage: DAILY DOSE:80MG
     Route: 048
     Dates: start: 20061129, end: 20061218
  2. DIAZEPAM [Concomitant]
     Indication: INSOMNIA
     Dosage: DAILY DOSE:10MG
     Route: 048
  3. ERGENYL CHRONO [Concomitant]
     Dosage: DAILY DOSE:1200MG
     Route: 048
     Dates: start: 20061121

REACTIONS (1)
  - MANIA [None]
